FAERS Safety Report 7506661-2 (Version None)
Quarter: 2011Q2

REPORT INFORMATION
  Report Type: 
  Country: None (occurrence: None)
  Receive Date: 20110526
  Receipt Date: 20110516
  Transmission Date: 20111010
  Serious: Yes (Hospitalization, Other)
  Sender: FDA-Public Use
  Company Number: US-VIROPHARMA INCORPORATED-20110516CINRY2013

PATIENT
  Sex: Female

DRUGS (9)
  1. LEXAPRO [Concomitant]
     Indication: DEPRESSION
     Route: 048
  2. TOPROL-XL [Concomitant]
     Indication: HYPERTENSION
     Route: 048
  3. LORTAB [Suspect]
     Indication: PROCEDURAL PAIN
     Dosage: UNKNOWN
  4. CINRYZE [Suspect]
     Indication: HEREDITARY ANGIOEDEMA
     Dates: start: 20040101
  5. VITAMIN D [Concomitant]
     Indication: PRODUCT USED FOR UNKNOWN INDICATION
     Route: 048
  6. PANTOPRAZOLE [Concomitant]
     Indication: GASTROOESOPHAGEAL REFLUX DISEASE
     Route: 048
  7. COUMADIN [Concomitant]
     Indication: ABNORMAL CLOTTING FACTOR
     Route: 048
  8. ELAVIL [Concomitant]
     Indication: RESTLESS LEGS SYNDROME
     Route: 048
  9. ASPIRIN [Concomitant]
     Indication: ABNORMAL CLOTTING FACTOR
     Route: 048

REACTIONS (7)
  - ASTHENIA [None]
  - BREAST CANCER [None]
  - HEREDITARY ANGIOEDEMA [None]
  - ANGIOEDEMA [None]
  - INCORRECT DOSE ADMINISTERED [None]
  - OFF LABEL USE [None]
  - NERVOUSNESS [None]
